FAERS Safety Report 7421685-1 (Version None)
Quarter: 2011Q2

REPORT INFORMATION
  Report Type: 
  Country: None (occurrence: None)
  Receive Date: 20110418
  Receipt Date: 20110408
  Transmission Date: 20111010
  Serious: Yes (Death)
  Sender: FDA-Public Use
  Company Number: TR-ROCHE-770265

PATIENT
  Age: 50 Year
  Sex: Female

DRUGS (4)
  1. FOLINIC ACID [Suspect]
     Route: 065
  2. FLUOROURACIL [Suspect]
     Route: 065
  3. IRINOTECAN [Suspect]
     Route: 065
  4. BEVACIZUMAB [Suspect]
     Dosage: 6CYCLES
     Route: 065

REACTIONS (1)
  - GRAND MAL CONVULSION [None]
